FAERS Safety Report 23591252 (Version 1)
Quarter: 2024Q1

REPORT INFORMATION
  Report Type: Spontaneous
  Country: US (occurrence: US)
  Receive Date: 20240304
  Receipt Date: 20240304
  Transmission Date: 20240409
  Serious: Yes (Other)
  Sender: FDA-Public Use
  Company Number: US-AMGEN-USASP2024042038

PATIENT

DRUGS (3)
  1. DARBEPOETIN ALFA [Suspect]
     Active Substance: DARBEPOETIN ALFA
     Indication: Myelodysplastic syndrome
     Dosage: 300 MICROGRAM (DAYS 1 AND 15 OF EACH CYCLE FOR A TOTAL OF 6 CYCLES)
     Route: 058
  2. CANAKINUMAB [Concomitant]
     Active Substance: CANAKINUMAB
     Indication: Myelodysplastic syndrome
     Dosage: 150 MILLIGRAM (ON DAY 1 OF A 28 CYCLE) (DOSE LEVEL 1)
     Route: 058
  3. CANAKINUMAB [Concomitant]
     Active Substance: CANAKINUMAB
     Dosage: 300 MILLIGRAM (ON DAY 1 OF A 28 CYCLE) (DOSE LEVEL 2)
     Route: 058

REACTIONS (5)
  - Neutropenia [Unknown]
  - Thrombocytopenia [Unknown]
  - Colitis [Unknown]
  - Liver function test abnormal [Unknown]
  - Off label use [Unknown]
